FAERS Safety Report 24187226 (Version 1)
Quarter: 2024Q3

REPORT INFORMATION
  Report Type: Spontaneous
  Country: US (occurrence: US)
  Receive Date: 20240808
  Receipt Date: 20240808
  Transmission Date: 20241017
  Serious: Yes (Other)
  Sender: AUROBINDO
  Company Number: US-AUROBINDO-AUR-APL-2024-038929

PATIENT
  Age: 72 Year
  Sex: Female

DRUGS (15)
  1. DEXAMETHASONE [Suspect]
     Active Substance: DEXAMETHASONE
     Indication: Prophylaxis
     Dosage: UNK
     Route: 065
  2. DEXAMETHASONE [Suspect]
     Active Substance: DEXAMETHASONE
     Indication: Cytokine release syndrome
  3. BLINATUMOMAB [Suspect]
     Active Substance: BLINATUMOMAB
     Indication: Philadelphia chromosome positive
     Dosage: UNK
     Route: 065
  4. BLINATUMOMAB [Suspect]
     Active Substance: BLINATUMOMAB
     Indication: B-cell type acute leukaemia
  5. NILOTINIB [Concomitant]
     Active Substance: NILOTINIB
     Indication: Philadelphia chromosome positive
     Dosage: UNK
     Route: 065
  6. NILOTINIB [Concomitant]
     Active Substance: NILOTINIB
     Indication: B-cell type acute leukaemia
  7. PREDNISONE [Concomitant]
     Active Substance: PREDNISONE
     Indication: Philadelphia chromosome positive
     Dosage: UNK
     Route: 065
  8. PREDNISONE [Concomitant]
     Active Substance: PREDNISONE
     Indication: B-cell type acute leukaemia
  9. ALLOPURINOL [Concomitant]
     Active Substance: ALLOPURINOL
     Indication: Philadelphia chromosome positive
     Dosage: UNK
     Route: 065
  10. ALLOPURINOL [Concomitant]
     Active Substance: ALLOPURINOL
     Indication: B-cell type acute leukaemia
  11. ENOXAPARIN [Concomitant]
     Active Substance: ENOXAPARIN
     Indication: Thrombosis
     Dosage: UNK
     Route: 065
  12. VINCRISTINE [Concomitant]
     Active Substance: VINCRISTINE
     Indication: Philadelphia chromosome positive
     Dosage: UNK
     Route: 065
  13. VINCRISTINE [Concomitant]
     Active Substance: VINCRISTINE
     Indication: B-cell type acute leukaemia
  14. ACETAMINOPHEN [Concomitant]
     Active Substance: ACETAMINOPHEN
     Indication: Pyrexia
     Dosage: UNK
     Route: 065
  15. MEPERIDINE [Concomitant]
     Active Substance: MEPERIDINE
     Indication: Chills
     Dosage: UNK
     Route: 065

REACTIONS (1)
  - Drug ineffective [Unknown]
